FAERS Safety Report 20007583 (Version 1)
Quarter: 2021Q4

REPORT INFORMATION
  Report Type: Spontaneous
  Country: AR (occurrence: AR)
  Receive Date: 20211028
  Receipt Date: 20211028
  Transmission Date: 20220303
  Serious: Yes (Other)
  Sender: FDA-Public Use
  Company Number: AR-AMGEN-ARGSP2021164888

PATIENT

DRUGS (3)
  1. XGEVA [Suspect]
     Active Substance: DENOSUMAB
     Indication: Bone giant cell tumour
     Dosage: 120 MILLIGRAM, QMO
     Route: 058
  2. CALCIUM [Concomitant]
     Active Substance: CALCIUM
  3. CHOLECALCIFEROL [Concomitant]
     Active Substance: CHOLECALCIFEROL

REACTIONS (11)
  - Undifferentiated sarcoma [Unknown]
  - Bone giant cell tumour [Unknown]
  - Gingivitis [Unknown]
  - Therapeutic product effect incomplete [Unknown]
  - Myalgia [Unknown]
  - Fatigue [Unknown]
  - Asthenia [Unknown]
  - Nausea [Unknown]
  - Vomiting [Unknown]
  - Hypocalcaemia [Recovered/Resolved]
  - Constipation [Unknown]
